FAERS Safety Report 21751849 (Version 2)
Quarter: 2022Q4

REPORT INFORMATION
  Report Type: Spontaneous
  Country: US (occurrence: US)
  Receive Date: 20221220
  Receipt Date: 20221230
  Transmission Date: 20230113
  Serious: Yes (Other)
  Sender: FDA-Public Use
  Company Number: US-BRISTOL-MYERS SQUIBB COMPANY-2022-155585

PATIENT
  Age: 83 Year
  Sex: Female
  Weight: 46.266 kg

DRUGS (2)
  1. REVLIMID [Suspect]
     Active Substance: LENALIDOMIDE
     Indication: Myelodysplastic syndrome
     Dosage: 21D ON 7D OFF
     Route: 048
  2. REVLIMID [Suspect]
     Active Substance: LENALIDOMIDE
     Route: 048
     Dates: start: 202211

REACTIONS (4)
  - Haemoglobin decreased [Unknown]
  - Chronic kidney disease [Unknown]
  - Neutropenia [Unknown]
  - Thrombocytopenia [Unknown]
